FAERS Safety Report 24911933 (Version 1)
Quarter: 2025Q1

REPORT INFORMATION
  Report Type: Spontaneous
  Country: CN (occurrence: CN)
  Receive Date: 20250131
  Receipt Date: 20250131
  Transmission Date: 20250409
  Serious: Yes (Hospitalization)
  Sender: DAIICHI
  Company Number: CN-DSJP-DS-2025-120570-CN

PATIENT
  Age: 58 Year
  Sex: Female
  Weight: 60 kg

DRUGS (2)
  1. EDOXABAN TOSYLATE [Suspect]
     Active Substance: EDOXABAN TOSYLATE
     Indication: Lung neoplasm malignant
     Dosage: 30 MG, QD
     Route: 048
     Dates: start: 20241130
  2. EDOXABAN TOSYLATE [Suspect]
     Active Substance: EDOXABAN TOSYLATE
     Indication: Pulmonary embolism
     Dosage: 60 MG, QD
     Route: 048
     Dates: start: 20241204, end: 20250107

REACTIONS (5)
  - Ecchymosis [Recovering/Resolving]
  - Skin swelling [Recovering/Resolving]
  - Haemoglobin decreased [Recovering/Resolving]
  - Epistaxis [Unknown]
  - Glomerular filtration rate decreased [Unknown]

NARRATIVE: CASE EVENT DATE: 20250106
